FAERS Safety Report 16258680 (Version 2)
Quarter: 2019Q2

REPORT INFORMATION
  Report Type: Spontaneous
  Country: DE (occurrence: DE)
  Receive Date: 20190430
  Receipt Date: 20190430
  Transmission Date: 20190711
  Serious: Yes (Other)
  Sender: FDA-Public Use
  Company Number: PHHY2019DE094805

PATIENT
  Sex: Male

DRUGS (18)
  1. PREDNISOLONE. [Suspect]
     Active Substance: PREDNISOLONE
     Dosage: 100 MG, QD (5 DAYS)
     Route: 065
     Dates: start: 20171212
  2. CIPROFLOXACIN. [Concomitant]
     Active Substance: CIPROFLOXACIN
     Indication: INFECTION PROPHYLAXIS
     Dosage: 500 MG/L, QD
     Route: 048
     Dates: start: 20171107
  3. DOXORUBICIN [Suspect]
     Active Substance: DOXORUBICIN
     Dosage: 74.63 MG, QD
     Route: 042
     Dates: start: 20171208
  4. RITUXIMAB. [Suspect]
     Active Substance: RITUXIMAB
     Dosage: 746.25 MG, QD
     Route: 042
     Dates: start: 20171207
  5. ENOXAPARIN SODIUM. [Concomitant]
     Active Substance: ENOXAPARIN SODIUM
     Indication: THROMBOSIS PROPHYLAXIS
     Dosage: 4 ML, QD
     Route: 058
     Dates: start: 20171024
  6. CIPROFLOXACIN. [Concomitant]
     Active Substance: CIPROFLOXACIN
     Dosage: 500 MG/L, QD
     Route: 048
     Dates: start: 20171108
  7. PEGFILGRASTIM [Suspect]
     Active Substance: PEGFILGRASTIM
     Indication: B-CELL LYMPHOMA
     Dosage: 6 MG, QD
     Route: 058
     Dates: start: 20171110
  8. PREDNISOLONE. [Suspect]
     Active Substance: PREDNISOLONE
     Indication: B-CELL LYMPHOMA
     Dosage: 100 MG, QD (5 DAYS)
     Route: 065
     Dates: start: 20171208
  9. VINCRISTINE [Suspect]
     Active Substance: VINCRISTINE
     Dosage: 3.32 MG, QD
     Route: 042
  10. ACICLOVIR [Concomitant]
     Active Substance: ACYCLOVIR
     Dosage: 400 MG/L, QD
     Route: 048
     Dates: start: 20171108
  11. DOXORUBICIN [Suspect]
     Active Substance: DOXORUBICIN
     Indication: B-CELL LYMPHOMA
     Dosage: 103 MG, QD
     Route: 042
     Dates: start: 20171107
  12. CYCLOPHOSPHAMIDE. [Suspect]
     Active Substance: CYCLOPHOSPHAMIDE
     Indication: B-CELL LYMPHOMA
     Dosage: 1545 MG, QD
     Route: 042
     Dates: start: 20171107
  13. VINCRISTINE [Suspect]
     Active Substance: VINCRISTINE
     Indication: B-CELL LYMPHOMA
     Dosage: 3.42 MG, QD
     Route: 042
     Dates: start: 20171108
  14. CYCLOPHOSPHAMIDE. [Suspect]
     Active Substance: CYCLOPHOSPHAMIDE
     Dosage: 1119.38 MG, QD
     Route: 042
     Dates: start: 20171208
  15. SULFAMETHOXAZOLE AND TRIMETHOPRIM [Concomitant]
     Active Substance: SULFAMETHOXAZOLE\TRIMETHOPRIM
     Indication: INFECTION PROPHYLAXIS
     Dosage: 960 MG, UNK (MONDAY WEDNESDAY AND FRIDAY)
     Route: 048
  16. RITUXIMAB. [Suspect]
     Active Substance: RITUXIMAB
     Indication: B-CELL LYMPHOMA
     Dosage: 772.5 MG, QD
     Route: 042
     Dates: start: 20171106
  17. ACICLOVIR [Concomitant]
     Active Substance: ACYCLOVIR
     Indication: INFECTION PROPHYLAXIS
     Dosage: 400 MG/L, QD
     Route: 048
     Dates: start: 20171107
  18. CHOLECALCIFEROL [Concomitant]
     Active Substance: CHOLECALCIFEROL
     Indication: VITAMIN SUPPLEMENTATION
     Dosage: 20000 IU, QW
     Route: 048
     Dates: start: 20171109

REACTIONS (3)
  - Embolism [Unknown]
  - Pulmonary embolism [Unknown]
  - Muscular weakness [Unknown]

NARRATIVE: CASE EVENT DATE: 20171218
